FAERS Safety Report 9380779 (Version 1)
Quarter: 2013Q3

REPORT INFORMATION
  Report Type: Spontaneous
  Country: US (occurrence: US)
  Receive Date: 20130702
  Receipt Date: 20130702
  Transmission Date: 20140515
  Serious: Yes (Other)
  Sender: FDA-Public Use
  Company Number: US-GILEAD-2013-0078135

PATIENT
  Age: 62 Year
  Sex: Female

DRUGS (9)
  1. LETAIRIS [Suspect]
     Indication: PULMONARY HYPERTENSION
     Dosage: 5 MG, QD
     Route: 048
     Dates: start: 201212, end: 201301
  2. LETAIRIS [Suspect]
     Dosage: 10 UNK, UNK
     Route: 048
     Dates: start: 201301, end: 201306
  3. LETAIRIS [Suspect]
     Dosage: 10 MG, QD
     Route: 048
     Dates: start: 20130612, end: 201306
  4. WARFARIN [Concomitant]
  5. KCL [Concomitant]
  6. NIFEDIPINE [Concomitant]
  7. OMEPRAZOLE [Concomitant]
  8. URSODIOL [Concomitant]
  9. SILDENAFIL [Concomitant]

REACTIONS (2)
  - Oedema peripheral [Unknown]
  - Dyspnoea exertional [Unknown]
